FAERS Safety Report 4952120-0 (Version None)
Quarter: 2006Q1

REPORT INFORMATION
  Report Type: 
  Country: None (occurrence: None)
  Receive Date: 20060320
  Receipt Date: 20060302
  Transmission Date: 20060701
  Serious: Yes (Other)
  Sender: FDA-Public Use
  Company Number: DSA_27750_2006

PATIENT
  Age: 77 Year
  Sex: Male

DRUGS (8)
  1. RENIVACE [Suspect]
     Indication: HYPERTENSION
     Dosage: 5 MG Q DAY PO
     Route: 048
     Dates: end: 20060110
  2. DILTIAZEM HCL [Concomitant]
  3. ASPIRIN [Concomitant]
  4. MAGNESIUM OXIDE [Concomitant]
  5. FORSENID [Concomitant]
  6. GASTER D [Concomitant]
  7. ANTIBIOTIC [Concomitant]
  8. PHYSIOLOGICAL SALINE [Concomitant]

REACTIONS (12)
  - BLOOD ALDOSTERONE DECREASED [None]
  - BLOOD ALKALINE PHOSPHATASE INCREASED [None]
  - BLOOD CREATININE INCREASED [None]
  - BLOOD LACTATE DEHYDROGENASE INCREASED [None]
  - BLOOD UREA INCREASED [None]
  - CREATININE RENAL CLEARANCE DECREASED [None]
  - EOSINOPHIL PERCENTAGE INCREASED [None]
  - HYPERKALAEMIA [None]
  - HYPONATRAEMIA [None]
  - LYMPHOCYTE COUNT INCREASED [None]
  - PLATELET COUNT DECREASED [None]
  - URINE CHLORIDE DECREASED [None]
